FAERS Safety Report 18958094 (Version 1)
Quarter: 2021Q1

REPORT INFORMATION
  Report Type: Spontaneous
  Country: US (occurrence: US)
  Receive Date: 20210302
  Receipt Date: 20210302
  Transmission Date: 20210420
  Serious: No
  Sender: FDA-Public Use
  Company Number: None

PATIENT
  Sex: Female

DRUGS (1)
  1. HUMIRA [Suspect]
     Active Substance: ADALIMUMAB
     Indication: DERMATITIS ATOPIC
     Dosage: ?          OTHER DOSE:40MG/0.4ML ;OTHER FREQUENCY:EVERY 14 DAYS;?
     Route: 011
     Dates: start: 20200428

REACTIONS (2)
  - Bronchospasm [None]
  - Therapy cessation [None]
